FAERS Safety Report 10004170 (Version 2)
Quarter: 2014Q2

REPORT INFORMATION
  Report Type: Spontaneous
  Country: US (occurrence: US)
  Receive Date: 20140312
  Receipt Date: 20140402
  Transmission Date: 20141212
  Serious: Yes (Hospitalization)
  Sender: FDA-Public Use
  Company Number: US-JNJFOC-20140306728

PATIENT
  Age: 84 Year
  Sex: Female

DRUGS (14)
  1. IMBRUVICA [Suspect]
     Indication: MANTLE CELL LYMPHOMA
     Dosage: 3 CAPSULES DAILY
     Route: 048
     Dates: start: 20140116
  2. IMBRUVICA [Suspect]
     Indication: MANTLE CELL LYMPHOMA
     Dosage: 2 CAPSULES DAILY
     Route: 048
     Dates: start: 20140108, end: 20140115
  3. LORATADINE [Concomitant]
  4. SLOW RELEASE IRON [Concomitant]
  5. TOPROL [Concomitant]
  6. ONE A DAY MULTIVITAMIN [Concomitant]
  7. BENTYL [Concomitant]
  8. COMPAZINE [Concomitant]
  9. KLOR-CON [Concomitant]
  10. MIRALAX [Concomitant]
  11. BIFIDOBACTERIUM [Concomitant]
  12. PREVACID [Concomitant]
  13. TYLENOL [Concomitant]
  14. ULTRAM [Concomitant]

REACTIONS (1)
  - Transient ischaemic attack [Recovering/Resolving]
